FAERS Safety Report 5828660-9 (Version None)
Quarter: 2008Q3

REPORT INFORMATION
  Report Type: 
  Country: None (occurrence: None)
  Receive Date: 20080731
  Receipt Date: 20080724
  Transmission Date: 20090109
  Serious: Yes (Other)
  Sender: FDA-Public Use
  Company Number: B0531223A

PATIENT
  Age: 51 Year
  Sex: Female

DRUGS (2)
  1. AUGMENTIN '125' [Suspect]
     Indication: MASTITIS
     Dosage: 2G PER DAY
     Route: 048
     Dates: start: 20080314, end: 20080321
  2. DIETARY SUPPLEMENT [Concomitant]
     Indication: MENOPAUSAL DISORDER

REACTIONS (7)
  - ASTHENIA [None]
  - FAECES PALE [None]
  - HEPATITIS CHOLESTATIC [None]
  - JAUNDICE CHOLESTATIC [None]
  - LIVER DISORDER [None]
  - NAUSEA [None]
  - PRURITUS GENERALISED [None]
